FAERS Safety Report 12517579 (Version 1)
Quarter: 2016Q2

REPORT INFORMATION
  Report Type: Spontaneous
  Country: AT (occurrence: AT)
  Receive Date: 20160630
  Receipt Date: 20160630
  Transmission Date: 20160815
  Serious: Yes (Other)
  Sender: FDA-Public Use
  Company Number: AT-WATSON-2016-13926

PATIENT
  Age: 25 Year
  Sex: Female
  Weight: 76.5 kg

DRUGS (17)
  1. IBUPROFEN. [Concomitant]
     Active Substance: IBUPROFEN
     Indication: PRODUCT USED FOR UNKNOWN INDICATION
     Dosage: 400 MG, UNK
     Route: 065
     Dates: start: 20150426, end: 20150429
  2. IBUPROFEN. [Concomitant]
     Active Substance: IBUPROFEN
     Dosage: 400 MG, UNK
     Route: 065
     Dates: start: 20150512, end: 20150513
  3. PRAXITEN [Concomitant]
     Active Substance: OXAZEPAM
     Indication: PRODUCT USED FOR UNKNOWN INDICATION
     Dosage: UNK - 7.5 MG - 30 MG
     Route: 065
     Dates: start: 20150426, end: 20150503
  4. SERTRALINE [Suspect]
     Active Substance: SERTRALINE HYDROCHLORIDE
     Dosage: 200 MG, UNK
     Route: 065
     Dates: start: 20150424, end: 20150428
  5. ABILIFY [Suspect]
     Active Substance: ARIPIPRAZOLE
     Indication: PRODUCT USED FOR UNKNOWN INDICATION
     Dosage: 5 MG, UNK
     Route: 065
     Dates: start: 20150424, end: 20150429
  6. HOVA [Concomitant]
     Active Substance: HOPS\VALERIAN
     Dosage: 2 DF, UNK
     Route: 065
     Dates: start: 20150428, end: 20150430
  7. HOVA [Concomitant]
     Active Substance: HOPS\VALERIAN
     Indication: PRODUCT USED FOR UNKNOWN INDICATION
     Dosage: 2 DF, UNK
     Route: 065
     Dates: start: 20150423, end: 20150423
  8. HOVA [Concomitant]
     Active Substance: HOPS\VALERIAN
     Dosage: 2 DF, UNK
     Route: 065
     Dates: start: 20150425, end: 20150425
  9. TRITTICO [Concomitant]
     Active Substance: TRAZODONE HYDROCHLORIDE
     Indication: PRODUCT USED FOR UNKNOWN INDICATION
     Dosage: 150 MG, UNK - DOSIS REDUCING
     Route: 065
     Dates: start: 201504, end: 20150426
  10. IBUPROFEN. [Concomitant]
     Active Substance: IBUPROFEN
     Dosage: 1200 MG, UNK
     Route: 065
     Dates: start: 20150508, end: 20150508
  11. ABILIFY [Suspect]
     Active Substance: ARIPIPRAZOLE
     Dosage: 10 MG, UNK
     Route: 065
     Dates: start: 20150430, end: 20150430
  12. SERTRALINE [Suspect]
     Active Substance: SERTRALINE HYDROCHLORIDE
     Dosage: 150 MG, UNK
     Route: 065
     Dates: start: 201504, end: 20150423
  13. SERTRALINE [Suspect]
     Active Substance: SERTRALINE HYDROCHLORIDE
     Indication: PRODUCT USED FOR UNKNOWN INDICATION
     Dosage: UNK - DOSIS INCREASING TILL 150 MG
     Route: 065
     Dates: end: 201504
  14. HOVA [Concomitant]
     Active Substance: HOPS\VALERIAN
     Dosage: 2 DF, UNK
     Route: 065
     Dates: start: 20150426, end: 20150426
  15. CIPRALEX [Concomitant]
     Active Substance: ESCITALOPRAM OXALATE
     Indication: PRODUCT USED FOR UNKNOWN INDICATION
     Dosage: 5 MG, UNK
     Route: 065
     Dates: start: 20150429, end: 20150430
  16. CIPRALEX [Concomitant]
     Active Substance: ESCITALOPRAM OXALATE
     Dosage: 10 MG, UNK
     Route: 065
     Dates: start: 20150501, end: 20160507
  17. CIPRALEX [Concomitant]
     Active Substance: ESCITALOPRAM OXALATE
     Dosage: 15 MG, UNK
     Route: 065
     Dates: start: 20150508

REACTIONS (1)
  - Pancreatitis [Recovered/Resolved]

NARRATIVE: CASE EVENT DATE: 20150427
